FAERS Safety Report 13015398 (Version 1)
Quarter: 2016Q4

REPORT INFORMATION
  Report Type: Spontaneous
  Country: US (occurrence: US)
  Receive Date: 20161211
  Receipt Date: 20161211
  Transmission Date: 20170207
  Serious: No
  Sender: FDA-Public Use
  Company Number: US-ASTRAZENECA-2016SF27139

PATIENT
  Sex: Female

DRUGS (1)
  1. RHINOCORT AQUA [Suspect]
     Active Substance: BUDESONIDE
     Route: 045

REACTIONS (1)
  - Allergy to chemicals [Not Recovered/Not Resolved]
